FAERS Safety Report 7922710-1 (Version None)
Quarter: 2011Q4

REPORT INFORMATION
  Report Type: 
  Country: None (occurrence: None)
  Receive Date: 20111117
  Receipt Date: 20110603
  Transmission Date: 20120403
  Serious: No
  Sender: FDA-Public Use
  Company Number: US-ALLERGAN-1107069US

PATIENT
  Age: 74 Year
  Sex: Male

DRUGS (7)
  1. ACTOS [Concomitant]
     Dosage: UNK
  2. JANUMET [Concomitant]
     Dosage: UNK
  3. GLYSET                             /01249401/ [Concomitant]
     Dosage: UNK
  4. UROXATRAL [Concomitant]
     Dosage: UNK
  5. VYTORIN [Concomitant]
     Dosage: UNK
  6. TRAVATAN [Concomitant]
     Indication: GLAUCOMA
     Dosage: 1 GTT, QD
     Route: 047
  7. COMBIGAN [Suspect]
     Indication: GLAUCOMA
     Dosage: 1 DROP ADMINISTERED TWICE DAILY TO EACH EYE
     Route: 047

REACTIONS (1)
  - SOMNOLENCE [None]
